FAERS Safety Report 20785262 (Version 1)
Quarter: 2022Q2

REPORT INFORMATION
  Report Type: Spontaneous
  Country: US (occurrence: None)
  Receive Date: 20220504
  Receipt Date: 20220504
  Transmission Date: 20220721
  Serious: No
  Sender: FDA-Public Use
  Company Number: None

PATIENT
  Age: 41 Year
  Sex: Male

DRUGS (1)
  1. CHORIONIC GONADOTROPIN [Suspect]
     Active Substance: CHORIOGONADOTROPIN ALFA
     Indication: Hypogonadism male
     Dosage: OTHER QUANTITY : 2000 UNITS;?FREQUENCY : 3 TIMES A WEEK;?
     Route: 041
     Dates: start: 20220429

REACTIONS (2)
  - Product physical issue [None]
  - Therapy interrupted [None]

NARRATIVE: CASE EVENT DATE: 20220429
